FAERS Safety Report 13162381 (Version 1)
Quarter: 2017Q1

REPORT INFORMATION
  Report Type: Spontaneous
  Country: US (occurrence: US)
  Receive Date: 20170130
  Receipt Date: 20170130
  Transmission Date: 20170428
  Serious: Yes (Other)
  Sender: FDA-Public Use
  Company Number: US-ROCHE-1884305

PATIENT
  Age: 65 Year
  Sex: Female

DRUGS (10)
  1. HARVONI [Suspect]
     Active Substance: LEDIPASVIR\SOFOSBUVIR
     Indication: PRODUCT USED FOR UNKNOWN INDICATION
     Route: 065
     Dates: start: 201510
  2. RIBAVIRIN. [Suspect]
     Active Substance: RIBAVIRIN
     Indication: HEPATITIS C
     Route: 048
     Dates: start: 1999
  3. INTERFERON ALFA-2A [Suspect]
     Active Substance: INTERFERON ALFA-2A
     Route: 065
     Dates: start: 2000
  4. VITAMIN B12 [Concomitant]
     Active Substance: CYANOCOBALAMIN
  5. RIBAVIRIN. [Suspect]
     Active Substance: RIBAVIRIN
     Route: 048
     Dates: end: 2002
  6. SYMBICORT [Concomitant]
     Active Substance: BUDESONIDE\FORMOTEROL FUMARATE DIHYDRATE
     Dosage: DOESN^T DO ANYTHING FOR COPD AND INTERSTITIAL LUNG DISEASE
     Route: 065
  7. PEGASYS [Suspect]
     Active Substance: PEGINTERFERON ALFA-2A
     Indication: HEPATITIS C
     Dosage: PEGASYS-RBV FOR UNKNOWN INDICATIONS (STARTED 2003}
     Route: 065
     Dates: start: 1999
  8. RIBAVIRIN. [Suspect]
     Active Substance: RIBAVIRIN
     Dosage: PEGASYS-RBV FOR UNKNOWN INDICATIONS (STARTED 2003}
     Route: 048
     Dates: end: 2000
  9. INTERFERON ALFA-2A [Suspect]
     Active Substance: INTERFERON ALFA-2A
     Route: 065
     Dates: start: 2002
  10. INTERFERON ALFA-2A [Suspect]
     Active Substance: INTERFERON ALFA-2A
     Indication: PRODUCT USED FOR UNKNOWN INDICATION
     Route: 065
     Dates: start: 1999

REACTIONS (10)
  - Respiration abnormal [Recovering/Resolving]
  - Fatigue [Unknown]
  - Injury [Unknown]
  - Therapy non-responder [Unknown]
  - Irritable bowel syndrome [Unknown]
  - Plantar fasciitis [Unknown]
  - Lung disorder [Unknown]
  - Weight increased [Unknown]
  - Dislocation of vertebra [Unknown]
  - Viral load increased [Unknown]

NARRATIVE: CASE EVENT DATE: 1999
